FAERS Safety Report 10614621 (Version 1)
Quarter: 2014Q4

REPORT INFORMATION
  Report Type: Spontaneous
  Country: US (occurrence: US)
  Receive Date: 20141130
  Receipt Date: 20141130
  Transmission Date: 20150529
  Serious: Yes (Other)
  Sender: FDA-Public Use
  Company Number: US-BRISTOL-MYERS SQUIBB COMPANY-21631700

PATIENT
  Age: 59 Year
  Sex: Female

DRUGS (1)
  1. BYDUREON [Suspect]
     Active Substance: EXENATIDE
     Indication: TYPE 2 DIABETES MELLITUS
     Route: 058

REACTIONS (5)
  - Dehydration [Unknown]
  - Acute kidney injury [Unknown]
  - Leukocytosis [Unknown]
  - Hypomagnesaemia [Unknown]
  - Hypokalaemia [Unknown]
